FAERS Safety Report 20862240 (Version 2)
Quarter: 2022Q2

REPORT INFORMATION
  Report Type: Report from Study
  Country: US (occurrence: US)
  Receive Date: 20220523
  Receipt Date: 20220609
  Transmission Date: 20220720
  Serious: Yes (Hospitalization)
  Sender: FDA-Public Use
  Company Number: US-NOVARTISPH-NVSC2022US114663

PATIENT
  Sex: Female

DRUGS (1)
  1. PIQRAY [Suspect]
     Active Substance: ALPELISIB
     Indication: Product used for unknown indication
     Dosage: 300 MG, QD (TWO 150 MG TABLETS WITH FOOD)
     Route: 048

REACTIONS (4)
  - Feeding disorder [Unknown]
  - Bacterial test positive [Unknown]
  - Loss of consciousness [Unknown]
  - Asthenia [Unknown]
